FAERS Safety Report 9868285 (Version 2)
Quarter: 2014Q1

REPORT INFORMATION
  Report Type: Spontaneous
  Country: US (occurrence: US)
  Receive Date: 20140204
  Receipt Date: 20140221
  Transmission Date: 20141002
  Serious: No
  Sender: FDA-Public Use
  Company Number: US-009507513-1402USA001356

PATIENT
  Age: 73 Year
  Sex: Female
  Weight: 86.17 kg

DRUGS (2)
  1. OXYTROL FOR WOMEN [Suspect]
     Indication: BLADDER DISORDER
     Dosage: 1 DF, Q4D
     Route: 062
     Dates: start: 20140101, end: 20140108
  2. OXYTROL FOR WOMEN [Suspect]
     Indication: NOCTURIA

REACTIONS (1)
  - Drug ineffective [Unknown]
